FAERS Safety Report 6549558-7 (Version None)
Quarter: 2010Q1

REPORT INFORMATION
  Report Type: 
  Country: None (occurrence: None)
  Receive Date: 20100125
  Receipt Date: 20100114
  Transmission Date: 20100710
  Serious: Yes (Hospitalization)
  Sender: FDA-Public Use
  Company Number: IT-ASTRAZENECA-2010SE02060

PATIENT
  Sex: Female

DRUGS (1)
  1. ATENOLOL [Suspect]

REACTIONS (2)
  - SYNCOPE [None]
  - TACHYCARDIA [None]
